FAERS Safety Report 8366769-9 (Version None)
Quarter: 2012Q2

REPORT INFORMATION
  Report Type: 
  Country: None (occurrence: None)
  Receive Date: 20120517
  Receipt Date: 20120507
  Transmission Date: 20120825
  Serious: Yes (Hospitalization)
  Sender: FDA-Public Use
  Company Number: SE-UCBSA-056950

PATIENT
  Age: 67 Year
  Sex: Male

DRUGS (7)
  1. PREDNISOLONE [Concomitant]
  2. NEUPRO [Suspect]
     Indication: RESTLESS LEGS SYNDROME
     Dosage: DOSE ESCALATION
     Route: 023
  3. PROPAVAN [Concomitant]
     Dosage: 25 MG
  4. NEUPRO [Suspect]
     Route: 023
  5. CARDIZEM [Concomitant]
     Dosage: 90 MG
  6. MESTINON [Concomitant]
  7. TOPAMAX [Concomitant]
     Dosage: 25 MG

REACTIONS (4)
  - SOMNOLENCE [None]
  - DIZZINESS [None]
  - CONFUSIONAL STATE [None]
  - DYSARTHRIA [None]
